FAERS Safety Report 4307713-0 (Version None)
Quarter: 2004Q1

REPORT INFORMATION
  Report Type: 
  Country: None (occurrence: None)
  Receive Date: 20040227
  Receipt Date: 20040227
  Transmission Date: 20041129
  Serious: Yes (Death, Hospitalization)
  Sender: FDA-Public Use
  Company Number: None

PATIENT

DRUGS (1)
  1. ZYPREXA [Suspect]

REACTIONS (6)
  - DYSKINESIA [None]
  - EXTRAPYRAMIDAL DISORDER [None]
  - INCOHERENT [None]
  - JOINT HYPEREXTENSION [None]
  - MUSCLE RIGIDITY [None]
  - TREMOR [None]
